FAERS Safety Report 13668423 (Version 1)
Quarter: 2017Q2

REPORT INFORMATION
  Report Type: Spontaneous
  Country: SE (occurrence: SE)
  Receive Date: 20170620
  Receipt Date: 20170620
  Transmission Date: 20170830
  Serious: Yes (Other)
  Sender: FDA-Public Use
  Company Number: SE-CONCORDIA PHARMACEUTICALS INC.-GSH201706-003640

PATIENT
  Age: 80 Year
  Sex: Male

DRUGS (1)
  1. ALFUZOSIN 10 MG [Suspect]
     Active Substance: ALFUZOSIN
     Route: 048

REACTIONS (1)
  - Gastritis [Not Recovered/Not Resolved]
